FAERS Safety Report 9008132 (Version 3)
Quarter: 2013Q1

REPORT INFORMATION
  Report Type: Report from Study
  Country: BR (occurrence: BR)
  Receive Date: 20130111
  Receipt Date: 20130309
  Transmission Date: 20140127
  Serious: Yes (Other)
  Sender: FDA-Public Use
  Company Number: BR-US-EMD SERONO, INC.-7186353

PATIENT
  Sex: Female

DRUGS (3)
  1. REBIF [Suspect]
     Indication: MULTIPLE SCLEROSIS
     Dates: start: 20120731, end: 20121221
  2. REBIF [Suspect]
     Dates: start: 201212
  3. TYLENOL [Concomitant]
     Indication: PREMEDICATION

REACTIONS (2)
  - Optic neuritis [Recovered/Resolved]
  - Monoplegia [Recovered/Resolved]
